FAERS Safety Report 16051936 (Version 1)
Quarter: 2019Q1

REPORT INFORMATION
  Report Type: Spontaneous
  Country: US (occurrence: US)
  Receive Date: 20190308
  Receipt Date: 20190308
  Transmission Date: 20190418
  Serious: Yes (Other)
  Sender: FDA-Public Use
  Company Number: US-AKORN PHARMACEUTICALS-2019AKN00395

PATIENT
  Sex: Female

DRUGS (1)
  1. MYORISAN [Suspect]
     Active Substance: ISOTRETINOIN
     Indication: ACNE
     Dosage: 60 MG, 1X/DAY ^WITH FOOD^
     Route: 048
     Dates: start: 20181003, end: 20190222

REACTIONS (3)
  - Skin fissures [Recovering/Resolving]
  - Insomnia [Unknown]
  - Depressed mood [Unknown]
